FAERS Safety Report 16166115 (Version 1)
Quarter: 2019Q2

REPORT INFORMATION
  Report Type: Spontaneous
  Country: FR (occurrence: FR)
  Receive Date: 20190406
  Receipt Date: 20190406
  Transmission Date: 20190711
  Serious: Yes (Life-Threatening)
  Sender: FDA-Public Use
  Company Number: FR-ACCORD-117536

PATIENT
  Age: 51 Year
  Sex: Female
  Weight: 60.5 kg

DRUGS (1)
  1. PACLITAXEL?ACCORD [Suspect]
     Active Substance: PACLITAXEL
     Indication: METASTATIC BRONCHIAL CARCINOMA
     Route: 041
     Dates: start: 20190102

REACTIONS (2)
  - Cardiac arrest [Recovered/Resolved]
  - Anaphylactic shock [Recovered/Resolved]

NARRATIVE: CASE EVENT DATE: 20190102
